FAERS Safety Report 9711926 (Version 1)
Quarter: 2013Q4

REPORT INFORMATION
  Report Type: Spontaneous
  Country: US (occurrence: US)
  Receive Date: 20131126
  Receipt Date: 20131126
  Transmission Date: 20140711
  Serious: No
  Sender: FDA-Public Use
  Company Number: US-BRISTOL-MYERS SQUIBB COMPANY-19127158

PATIENT
  Age: 60 Year
  Sex: Male

DRUGS (4)
  1. BYDUREON [Suspect]
     Indication: TYPE 2 DIABETES MELLITUS
     Dates: start: 201302
  2. LANTUS [Concomitant]
     Dosage: 45 UNITS
  3. NOVOLOG [Concomitant]
     Dosage: 8-10 UNITS BEFORE EACH MEAL
  4. JANUMET [Concomitant]

REACTIONS (2)
  - Weight decreased [Unknown]
  - Injection site haemorrhage [Unknown]
